FAERS Safety Report 5683191-4 (Version None)
Quarter: 2008Q1

REPORT INFORMATION
  Report Type: 
  Country: None (occurrence: None)
  Receive Date: 20080327
  Receipt Date: 20080325
  Transmission Date: 20080703
  Serious: Yes (Death, Hospitalization)
  Sender: FDA-Public Use
  Company Number: ZA-BOEHRINGER INGELHEIM GMBH, GERMANY-2008-BP-04636BP

PATIENT
  Age: 9 Month
  Sex: Male

DRUGS (1)
  1. VIRAMUNE [Suspect]
     Indication: HIV INFECTION
     Route: 065

REACTIONS (3)
  - IMMUNE RECONSTITUTION SYNDROME [None]
  - LOWER RESPIRATORY TRACT INFECTION [None]
  - TUBERCULOSIS [None]
